FAERS Safety Report 8432682-1 (Version None)
Quarter: 2012Q2

REPORT INFORMATION
  Report Type: 
  Country: None (occurrence: None)
  Receive Date: 20120607
  Receipt Date: 20120522
  Transmission Date: 20120825
  Serious: Yes (Other)
  Sender: FDA-Public Use
  Company Number: 2012AT000286

PATIENT
  Age: 39 Year
  Sex: Male

DRUGS (1)
  1. TESTOPEL [Suspect]
     Indication: ANDROGEN DEFICIENCY
     Dosage: ;SC
     Route: 058

REACTIONS (3)
  - IMPLANT SITE PAIN [None]
  - NEUROMA [None]
  - FOREIGN BODY REACTION [None]
